FAERS Safety Report 7421908-9 (Version None)
Quarter: 2011Q2

REPORT INFORMATION
  Report Type: 
  Country: None (occurrence: None)
  Receive Date: 20110418
  Receipt Date: 20110405
  Transmission Date: 20111010
  Serious: Yes (Hospitalization)
  Sender: FDA-Public Use
  Company Number: JP-ELI_LILLY_AND_COMPANY-JP201103008334

PATIENT

DRUGS (8)
  1. ZYPREXA [Suspect]
     Indication: INSOMNIA
     Dosage: 5 MG, QD
     Route: 064
     Dates: end: 20110310
  2. TECIPUL [Concomitant]
     Dosage: 2 MG, UNK
     Route: 064
     Dates: end: 20110310
  3. PAXIL [Concomitant]
     Dosage: 10 MG, UNK
     Route: 064
     Dates: end: 20110310
  4. DEPAS [Concomitant]
     Dosage: 4 MG, UNK
     Route: 064
     Dates: end: 20110310
  5. TECIPUL [Concomitant]
     Indication: DEPRESSION
     Dosage: 2 MG, UNK
     Route: 064
     Dates: end: 20110310
  6. DEPAS [Concomitant]
     Indication: DEPRESSION
     Dosage: 4 MG, UNK
     Route: 064
     Dates: end: 20110310
  7. ZYPREXA [Suspect]
     Dosage: 5 MG, QD
     Route: 064
     Dates: end: 20110310
  8. PAXIL [Concomitant]
     Indication: DEPRESSION
     Dosage: 10 MG, UNK
     Route: 064
     Dates: end: 20110310

REACTIONS (3)
  - NEONATAL ASPHYXIA [None]
  - JAUNDICE NEONATAL [None]
  - DRUG EXPOSURE DURING PREGNANCY [None]
